FAERS Safety Report 18471617 (Version 2)
Quarter: 2021Q1

REPORT INFORMATION
  Report Type: Spontaneous
  Country: US (occurrence: US)
  Receive Date: 20201106
  Receipt Date: 20210108
  Transmission Date: 20210419
  Serious: No
  Sender: FDA-Public Use
  Company Number: US-BRISTOL-MYERS SQUIBB COMPANY-BMS-2020-093224

PATIENT
  Sex: Male

DRUGS (11)
  1. COUMADIN [Suspect]
     Active Substance: WARFARIN SODIUM
     Dosage: 15 MILLIGRAM
     Route: 065
     Dates: start: 20181101
  2. COUMADIN [Suspect]
     Active Substance: WARFARIN SODIUM
     Dosage: 10 MILLIGRAM
     Route: 065
     Dates: start: 20181102, end: 20181104
  3. COUMADIN [Suspect]
     Active Substance: WARFARIN SODIUM
     Dosage: 7.5 MILLIGRAM
     Route: 065
     Dates: start: 20181025, end: 20181027
  4. COUMADIN [Suspect]
     Active Substance: WARFARIN SODIUM
     Dosage: 5 MILLIGRAM
     Route: 065
     Dates: start: 20181028
  5. COUMADIN [Suspect]
     Active Substance: WARFARIN SODIUM
     Dosage: 7.5 MILLIGRAM
     Route: 065
     Dates: start: 20181030, end: 20181031
  6. COUMADIN [Suspect]
     Active Substance: WARFARIN SODIUM
     Dosage: 7.5 MILLIGRAM
     Route: 065
     Dates: start: 20181106
  7. COUMADIN [Suspect]
     Active Substance: WARFARIN SODIUM
     Indication: HEART VALVE REPLACEMENT
     Dosage: 7.5 MILLIGRAM
     Route: 065
     Dates: start: 20181022, end: 20181022
  8. COUMADIN [Suspect]
     Active Substance: WARFARIN SODIUM
     Dosage: 10 MILLIGRAM
     Route: 065
     Dates: start: 20181029
  9. COUMADIN [Suspect]
     Active Substance: WARFARIN SODIUM
     Dosage: 10 MILLIGRAM
     Route: 065
     Dates: start: 20181107
  10. COUMADIN [Suspect]
     Active Substance: WARFARIN SODIUM
     Dosage: 5 MILLIGRAM
     Route: 065
     Dates: start: 20181024
  11. COUMADIN [Suspect]
     Active Substance: WARFARIN SODIUM
     Dosage: 7.5 MILLIGRAM
     Route: 065
     Dates: start: 20181108, end: 20181110

REACTIONS (3)
  - Epistaxis [Recovered/Resolved]
  - Mouth haemorrhage [Unknown]
  - International normalised ratio abnormal [Recovered/Resolved]
